FAERS Safety Report 15182818 (Version 2)
Quarter: 2018Q3

REPORT INFORMATION
  Report Type: Spontaneous
  Country: AU (occurrence: AU)
  Receive Date: 20180723
  Receipt Date: 20180809
  Transmission Date: 20181010
  Serious: Yes (Life-Threatening, Hospitalization)
  Sender: FDA-Public Use
  Company Number: AU-PFIZER INC-2018287674

PATIENT
  Age: 64 Year
  Sex: Male

DRUGS (2)
  1. LYRICA [Suspect]
     Active Substance: PREGABALIN
     Indication: NEURALGIA
  2. XELJANZ [Suspect]
     Active Substance: TOFACITINIB CITRATE
     Indication: RHEUMATOID ARTHRITIS
     Dosage: 5 MG, 2X/DAY
     Route: 048
     Dates: start: 20170201

REACTIONS (5)
  - Varicella [Recovering/Resolving]
  - Oedema peripheral [Unknown]
  - Disseminated varicella zoster vaccine virus infection [Recovering/Resolving]
  - Immunodeficiency [Not Recovered/Not Resolved]
  - Varicella zoster pneumonia [Recovering/Resolving]

NARRATIVE: CASE EVENT DATE: 201806
